FAERS Safety Report 9433742 (Version 2)
Quarter: 2013Q3

REPORT INFORMATION
  Report Type: Spontaneous
  Country: US (occurrence: US)
  Receive Date: 20130731
  Receipt Date: 20130903
  Transmission Date: 20140515
  Serious: Yes (Disabling, Other)
  Sender: FDA-Public Use
  Company Number: US-UCBSA-092935

PATIENT
  Sex: Female
  Weight: 48.5 kg

DRUGS (2)
  1. KEPPRA XR [Suspect]
     Indication: CONVULSION
     Dosage: 500 MG 2/DAILY
  2. LORAZEPAM [Concomitant]
     Indication: ANXIETY

REACTIONS (6)
  - Convulsion [Not Recovered/Not Resolved]
  - Multiple fractures [Unknown]
  - Concussion [Unknown]
  - Laceration [Unknown]
  - Road traffic accident [Recovered/Resolved]
  - Head injury [Recovered/Resolved]
